FAERS Safety Report 18182880 (Version 1)
Quarter: 2020Q3

REPORT INFORMATION
  Report Type: Spontaneous
  Country: US (occurrence: US)
  Receive Date: 20200821
  Receipt Date: 20200821
  Transmission Date: 20201103
  Serious: Yes (Death, Other)
  Sender: FDA-Public Use
  Company Number: US-GILEAD-2020-0491470

PATIENT

DRUGS (1)
  1. YESCARTA [Suspect]
     Active Substance: AXICABTAGENE CILOLEUCEL
     Indication: PRODUCT USED FOR UNKNOWN INDICATION
     Dosage: 1 DOSAGE FORM, ONCE
     Route: 042
     Dates: start: 20191121, end: 20191121

REACTIONS (4)
  - Somnolence [Recovered/Resolved]
  - Cytokine release syndrome [Unknown]
  - Neutropenia [Unknown]
  - Clostridial sepsis [Fatal]

NARRATIVE: CASE EVENT DATE: 201911
